FAERS Safety Report 17252845 (Version 1)
Quarter: 2020Q1

REPORT INFORMATION
  Report Type: Spontaneous
  Country: CN (occurrence: CN)
  Receive Date: 20200109
  Receipt Date: 20200109
  Transmission Date: 20200409
  Serious: Yes (Hospitalization)
  Sender: FDA-Public Use
  Company Number: CN-BAXTER-2020BAX000163

PATIENT
  Age: 49 Year
  Sex: Female
  Weight: 44 kg

DRUGS (18)
  1. ENDOXAN [Suspect]
     Active Substance: CYCLOPHOSPHAMIDE
     Dosage: 5TH COURSE OF CHEMOTHERAPY, ENDOXAN POWDER FOR INJECTION + NS 500ML
     Route: 041
     Dates: start: 20190715, end: 20190715
  2. METHOTREXATE. [Suspect]
     Active Substance: METHOTREXATE
     Dosage: 5TH COURSE, METHOTREXATE INJECTION+ NS 1000 ML, VIA MICRO-PUMP WAS CONTINUOUSLY INFUSED
     Route: 041
     Dates: start: 20190708, end: 20190708
  3. 0.9% SODIUM CHLORIDE INJECTION [Suspect]
     Active Substance: SODIUM CHLORIDE
     Dosage: 5TH COURSE, ENDOXAN POWDER FOR INJECTION 0.8 G + NS
     Route: 041
     Dates: start: 20190715, end: 20190715
  4. ENDOXAN [Suspect]
     Active Substance: CYCLOPHOSPHAMIDE
     Dosage: DOSE RE-INTRODUCED, ENDOXAN POWDER FOR INJECTION + NS
     Route: 041
  5. 0.9% SODIUM CHLORIDE INJECTION [Suspect]
     Active Substance: SODIUM CHLORIDE
     Dosage: 1-4 COURSE OF CHEMOTHERAPY, ENDOXAN POWDER FOR INJECTION + NS
     Route: 041
  6. 0.9% SODIUM CHLORIDE INJECTION [Suspect]
     Active Substance: SODIUM CHLORIDE
     Dosage: 5TH COURSE, METHOTREXATE INJECTION 280 MG + NS, VIA MICRO-PUMP WAS CONTINUOUSLY INFUSED
     Route: 041
     Dates: start: 20190708, end: 20190708
  7. 0.9% SODIUM CHLORIDE INJECTION [Suspect]
     Active Substance: SODIUM CHLORIDE
     Dosage: DOSE RE-INTRODUCED, METHOTREXATE INJECTION + NS
     Route: 041
  8. METHOTREXATE. [Suspect]
     Active Substance: METHOTREXATE
     Dosage: 5TH COURSE, METHOTREXATE INJECTION + NS 30 ML
     Route: 041
     Dates: start: 20190708, end: 20190708
  9. RECOMBINANT HUMAN THROMBOPOIETIN [Concomitant]
     Active Substance: THROMBOPOIETIN
     Indication: PROPHYLAXIS
     Route: 058
     Dates: start: 20190716, end: 20190718
  10. RECOMBINANT HUMAN GRANULOCYTE STIMULATING FACTOR [Concomitant]
     Route: 065
     Dates: start: 20190716, end: 20190718
  11. ENDOXAN [Suspect]
     Active Substance: CYCLOPHOSPHAMIDE
     Indication: CHORIOCARCINOMA
     Dosage: 1- 4 COURSE OF CHEMOTHERAPY, ENDOXAN POWDER FOR INJECTION + NS
     Route: 041
  12. 0.9% SODIUM CHLORIDE INJECTION [Suspect]
     Active Substance: SODIUM CHLORIDE
     Dosage: 5TH COURSE, METHOTREXATE INJECTION 140 MG + NS
     Route: 041
     Dates: start: 20190708, end: 20190708
  13. 0.9% SODIUM CHLORIDE INJECTION [Suspect]
     Active Substance: SODIUM CHLORIDE
     Dosage: DOSE RE-INTRODUCED, ENDOXAN POWDER FOR INJECTION + NS
     Route: 041
  14. METHOTREXATE. [Suspect]
     Active Substance: METHOTREXATE
     Dosage: DOSE RE-INTRODUCED, METHOTREXATE INJECTION + NS
     Route: 041
  15. RECOMBINANT HUMAN INTERLEUKIN-11 [Concomitant]
     Active Substance: OPRELVEKIN
     Indication: PROPHYLAXIS
     Route: 065
     Dates: start: 20190717, end: 20190718
  16. 0.9% SODIUM CHLORIDE INJECTION [Suspect]
     Active Substance: SODIUM CHLORIDE
     Indication: MEDICATION DILUTION
     Dosage: 1-4 COURSE OF CHEMOTHERAPY, METHOTREXATE INJECTION + NS
     Route: 041
  17. METHOTREXATE. [Suspect]
     Active Substance: METHOTREXATE
     Indication: CHORIOCARCINOMA
     Dosage: 1-4 COURSE OF CHEMOTHERAPY, METHOTREXATE INJECTION + NS
     Route: 041
  18. RECOMBINANT HUMAN GRANULOCYTE STIMULATING FACTOR [Concomitant]
     Indication: PROPHYLAXIS
     Route: 065
     Dates: start: 20190713

REACTIONS (1)
  - Bone marrow failure [Recovering/Resolving]

NARRATIVE: CASE EVENT DATE: 20190718
